FAERS Safety Report 9142984 (Version 2)
Quarter: 2013Q1

REPORT INFORMATION
  Report Type: Spontaneous
  Country: US (occurrence: US)
  Receive Date: 20130306
  Receipt Date: 20130322
  Transmission Date: 20140127
  Serious: No
  Sender: FDA-Public Use
  Company Number: US-PFIZER INC-2013075405

PATIENT
  Age: 54 Year
  Sex: Male
  Weight: 87.53 kg

DRUGS (10)
  1. PRISTIQ [Suspect]
     Dosage: 100 MG, UNK
  2. PRISTIQ [Suspect]
     Dosage: 50 MG, UNK
     Dates: end: 20130301
  3. BENADRYL [Concomitant]
     Indication: SLEEP APNOEA SYNDROME
     Dosage: 50 MG, AS NEEDED
  4. IBUPROFEN [Concomitant]
     Indication: ARTHRITIS
     Dosage: 200 MG, UNK
  5. IBUPROFEN [Concomitant]
     Indication: BACK PAIN
  6. IBUPROFEN [Concomitant]
     Indication: ARTHRALGIA
  7. TYLENOL [Concomitant]
     Indication: ARTHRITIS
     Dosage: 500 MG, AS NEEDED
  8. TYLENOL [Concomitant]
     Indication: BACK PAIN
  9. TYLENOL [Concomitant]
     Indication: ARTHRALGIA
  10. NEXIUM [Concomitant]
     Indication: GASTROOESOPHAGEAL REFLUX DISEASE
     Dosage: UNK

REACTIONS (1)
  - Paraesthesia [Not Recovered/Not Resolved]
